FAERS Safety Report 9513238 (Version 1)
Quarter: 2013Q3

REPORT INFORMATION
  Report Type: Spontaneous
  Country: NL (occurrence: NL)
  Receive Date: 20130910
  Receipt Date: 20130910
  Transmission Date: 20140515
  Serious: Yes (Life-Threatening, Hospitalization)
  Sender: FDA-Public Use
  Company Number: NL-TEVA-430981ISR

PATIENT
  Age: 68 Year
  Sex: Male

DRUGS (2)
  1. VERAPAMIL [Suspect]
     Indication: OVERDOSE
     Dosage: 6700 MILLIGRAM DAILY; OF WHICH 6300MG (94%) WAS IN EXTENDED-RELEASE CAPSULES
     Route: 048
  2. VERAPAMIL [Suspect]
     Indication: SUPRAVENTRICULAR TACHYCARDIA

REACTIONS (10)
  - Toxicity to various agents [Recovered/Resolved]
  - Overdose [Recovered/Resolved]
  - Suicide attempt [Recovered/Resolved]
  - Vasoplegia syndrome [Recovered/Resolved]
  - Shock [Recovered/Resolved]
  - Bradycardia [Recovered/Resolved]
  - Ventricular fibrillation [Recovered/Resolved]
  - Metabolic acidosis [Recovered/Resolved]
  - Renal failure acute [Recovered/Resolved]
  - Somnolence [Recovered/Resolved]
